FAERS Safety Report 5450370-0 (Version None)
Quarter: 2007Q3

REPORT INFORMATION
  Report Type: 
  Country: None (occurrence: None)
  Receive Date: 20070912
  Receipt Date: 20070909
  Transmission Date: 20080115
  Serious: Yes (Life-Threatening, Hospitalization)
  Sender: FDA-Public Use
  Company Number: CN-SHR-CN-2007-033876

PATIENT
  Age: 67 Year
  Sex: Male
  Weight: 60 kg

DRUGS (1)
  1. ULTRAVIST 300 [Suspect]
     Dosage: 80 ML, 1 DOSE
     Route: 042
     Dates: start: 20070830, end: 20070830

REACTIONS (4)
  - BLOOD PRESSURE IMMEASURABLE [None]
  - CYANOSIS [None]
  - PULSE ABSENT [None]
  - SHOCK [None]
